FAERS Safety Report 21688376 (Version 2)
Quarter: 2022Q4

REPORT INFORMATION
  Report Type: Report from Study
  Country: BD (occurrence: BD)
  Receive Date: 20221206
  Receipt Date: 20221209
  Transmission Date: 20230113
  Serious: Yes (Death, Hospitalization)
  Sender: FDA-Public Use
  Company Number: BD-002147023-NVSC2022BD283114

PATIENT
  Age: 86 Year
  Sex: Male
  Weight: 55 kg

DRUGS (1)
  1. TASIGNA [Suspect]
     Active Substance: NILOTINIB
     Indication: Leukaemia
     Dosage: UNK
     Route: 048
     Dates: start: 20221015, end: 20221101

REACTIONS (2)
  - Malignant neoplasm progression [Fatal]
  - Leukaemia [Fatal]
